FAERS Safety Report 21879243 (Version 2)
Quarter: 2023Q1

REPORT INFORMATION
  Report Type: Spontaneous
  Country: US (occurrence: US)
  Receive Date: 20230118
  Receipt Date: 20230317
  Transmission Date: 20230418
  Serious: No
  Sender: FDA-Public Use
  Company Number: US-SA-SAC20230116000206

PATIENT
  Age: 40 Year
  Sex: Female

DRUGS (1)
  1. DUPIXENT [Suspect]
     Active Substance: DUPILUMAB
     Dosage: 300MG OTHER
     Route: 058
     Dates: start: 20221011

REACTIONS (2)
  - Dry throat [Unknown]
  - Illness [Unknown]

NARRATIVE: CASE EVENT DATE: 20221124
